FAERS Safety Report 5332316-9 (Version None)
Quarter: 2007Q2

REPORT INFORMATION
  Report Type: 
  Country: None (occurrence: None)
  Receive Date: 20070306
  Receipt Date: 20061009
  Transmission Date: 20071010
  Serious: Yes (Hospitalization)
  Sender: FDA-Public Use
  Company Number: A03200606177

PATIENT
  Age: 59 Year
  Sex: Male
  Weight: 66 kg

DRUGS (18)
  1. PLAVIX [Suspect]
     Dosage: ORAL
     Route: 048
     Dates: end: 20060501
  2. EPOGEN [Suspect]
     Indication: DIALYSIS
     Dosage: 33300 IU 3/WEEK - INTRAVENOUS NOS
     Route: 042
     Dates: start: 20041105, end: 20060501
  3. ALTACE [Suspect]
     Dosage: ORAL
     Route: 048
     Dates: end: 20060501
  4. QUININE - UNKNOWN - UNIT DOSE : UNKNOWN [Suspect]
     Dosage: ORAL
     Route: 048
     Dates: end: 20060501
  5. ACETYLSALICYLIC ACID SRT [Suspect]
     Dosage: ORAL
     Route: 048
     Dates: start: 20041101, end: 20060501
  6. HEPARIN [Suspect]
     Dates: end: 20060501
  7. ZOLPIDEM TARTRATE [Concomitant]
  8. CARVEDILOL [Concomitant]
  9. MULTIVITAMIN [Concomitant]
  10. INSULIN [Concomitant]
  11. ATORVASTATIN [Concomitant]
  12. LORAZEPAM [Concomitant]
  13. PREDNISONE TAB [Concomitant]
  14. SEVELAMER [Concomitant]
  15. CARBIDOPA AND LEVODOPA [Concomitant]
  16. CALCIUM CARBONATE [Concomitant]
  17. AZATHIOPRINE [Concomitant]
  18. CYCLOSPORINE [Concomitant]

REACTIONS (1)
  - APLASTIC ANAEMIA [None]
